FAERS Safety Report 13344607 (Version 2)
Quarter: 2017Q2

REPORT INFORMATION
  Report Type: Spontaneous
  Country: JP (occurrence: JP)
  Receive Date: 20170317
  Receipt Date: 20170614
  Transmission Date: 20170830
  Serious: Yes (Other)
  Sender: FDA-Public Use
  Company Number: JP-UCBSA-2017010044

PATIENT
  Age: 3 Year
  Sex: Female

DRUGS (2)
  1. XYZAL [Suspect]
     Active Substance: LEVOCETIRIZINE DIHYDROCHLORIDE
     Indication: HYPERSENSITIVITY
     Dosage: 2.5 ML, PRN; SYRUP
     Route: 048
     Dates: start: 20161121, end: 2016
  2. XYZAL [Suspect]
     Active Substance: LEVOCETIRIZINE DIHYDROCHLORIDE
     Dosage: EXPIRED PRODUCT
     Dates: start: 20170309, end: 20170309

REACTIONS (2)
  - Nausea [Unknown]
  - Expired product administered [Unknown]

NARRATIVE: CASE EVENT DATE: 20170309
